FAERS Safety Report 4336390-8 (Version None)
Quarter: 2004Q2

REPORT INFORMATION
  Report Type: 
  Country: None (occurrence: None)
  Receive Date: 20040412
  Receipt Date: 20040407
  Transmission Date: 20050107
  Serious: Yes (Death, Hospitalization)
  Sender: FDA-Public Use
  Company Number: PHBS2004SE04636

PATIENT
  Age: 60 Year
  Sex: Male

DRUGS (11)
  1. ZOMETA [Suspect]
     Indication: METASTASES TO BONE
     Route: 042
     Dates: start: 20030710, end: 20030806
  2. VIOXX [Concomitant]
  3. MARZINE [Concomitant]
     Dosage: 50 MG
  4. ACETAMINOPHEN [Concomitant]
     Dosage: 500 MG
  5. BETAPRED [Concomitant]
  6. PRIMOLUT-NOR [Concomitant]
  7. LAXOBERAL ^FERRING^ [Concomitant]
  8. MORFIN BIOGLAN [Concomitant]
  9. DOLCONTIN [Concomitant]
  10. ENANTON - SLOW RELEASE [Concomitant]
  11. LOSEC [Concomitant]

REACTIONS (6)
  - HAEMOGLOBIN DECREASED [None]
  - MALIGNANT NEOPLASM PROGRESSION [None]
  - METASTASES TO BONE MARROW [None]
  - PANCYTOPENIA [None]
  - PLATELET COUNT DECREASED [None]
  - WHITE BLOOD CELL COUNT DECREASED [None]
